FAERS Safety Report 11251581 (Version 2)
Quarter: 2019Q2

REPORT INFORMATION
  Report Type: Other
  Country: US (occurrence: US)
  Receive Date: 20150708
  Receipt Date: 20190510
  Transmission Date: 20190711
  Serious: Yes (Other)
  Sender: FDA-Public Use
  Company Number: US-LUNDBECK-DKLU2001209

PATIENT
  Age: 19 Year
  Sex: Male

DRUGS (4)
  1. PHENYTOIN. [Concomitant]
     Active Substance: PHENYTOIN
     Indication: EPILEPSY
     Route: 065
  2. CLOBAZAM. [Suspect]
     Active Substance: CLOBAZAM
     Indication: EPILEPSY
     Route: 065
  3. CANNABIDIOL [Interacting]
     Active Substance: CANNABIDIOL
     Indication: EPILEPSY
     Route: 065
  4. LACOSAMIDE. [Concomitant]
     Active Substance: LACOSAMIDE
     Indication: EPILEPSY
     Route: 065

REACTIONS (5)
  - Drug withdrawal convulsions [Recovering/Resolving]
  - Drug interaction [Recovering/Resolving]
  - Ataxia [Recovering/Resolving]
  - Seizure [Recovering/Resolving]
  - Urinary retention [Recovering/Resolving]
